FAERS Safety Report 17190748 (Version 1)
Quarter: 2019Q4

REPORT INFORMATION
  Report Type: Spontaneous
  Country: CH (occurrence: CH)
  Receive Date: 20191223
  Receipt Date: 20191223
  Transmission Date: 20200122
  Serious: Yes (Hospitalization, Other)
  Sender: FDA-Public Use
  Company Number: CH-PFIZER INC-2019543098

PATIENT
  Age: 51 Year
  Sex: Female
  Weight: 67.8 kg

DRUGS (2)
  1. DEPAKINE CHRONO [Suspect]
     Active Substance: VALPROATE SODIUM
     Dosage: 15G, 50 DF, SINGLE (INCONGRUOUS INTAKE OF 50 TABLETS OF DEPAKINE CHRONO 300 MG (ESTIMATED) AT ONCE)
     Route: 048
     Dates: start: 20191028, end: 20191028
  2. TEMESTA EXPIDET [Suspect]
     Active Substance: LORAZEPAM
     Dosage: 20MG, 20 DF, SINGLE (INCONGRUOUS INTAKE OF 20 TABLETS OF TEMESTA 1 MG (ESTIMATED) AT ONCE)
     Route: 048
     Dates: start: 20191028, end: 20191028

REACTIONS (5)
  - Intentional overdose [Recovered/Resolved]
  - Depressive symptom [Unknown]
  - Suicide attempt [Recovered/Resolved]
  - Altered state of consciousness [Recovered/Resolved]
  - Bradycardia [Unknown]

NARRATIVE: CASE EVENT DATE: 20191028
